FAERS Safety Report 15326431 (Version 1)
Quarter: 2018Q3

REPORT INFORMATION
  Report Type: Spontaneous
  Country: US (occurrence: US)
  Receive Date: 20180828
  Receipt Date: 20180828
  Transmission Date: 20181010
  Serious: Yes (Other)
  Sender: FDA-Public Use
  Company Number: US-AKORN PHARMACEUTICALS-2018AKN01245

PATIENT
  Age: 35 Year
  Sex: Female
  Weight: 87.98 kg

DRUGS (4)
  1. MYORISAN [Suspect]
     Active Substance: ISOTRETINOIN
     Indication: ACNE
     Dosage: 40 MG, 1X/DAY
     Route: 048
     Dates: start: 20180705, end: 20180809
  2. MOTRIN [Suspect]
     Active Substance: IBUPROFEN
     Indication: BREAKTHROUGH PAIN
     Dosage: UNK, AS NEEDED
     Dates: start: 20180720, end: 2018
  3. OXYCODONE [Suspect]
     Active Substance: OXYCODONE
     Indication: BREAKTHROUGH PAIN
     Dosage: UNK, AS NEEDED
     Dates: start: 20180720, end: 2018
  4. TYLENOL [Suspect]
     Active Substance: ACETAMINOPHEN
     Indication: BREAKTHROUGH PAIN
     Dosage: UNK, AS NEEDED
     Dates: start: 20180720, end: 2018

REACTIONS (9)
  - Dyskinesia [Recovering/Resolving]
  - Skin discolouration [Unknown]
  - Tonsillectomy [Unknown]
  - Swelling face [Unknown]
  - Cognitive disorder [Recovering/Resolving]
  - Panic attack [Recovering/Resolving]
  - Off label use [Recovered/Resolved]
  - Dyspnoea [Recovering/Resolving]
  - Crying [Recovering/Resolving]

NARRATIVE: CASE EVENT DATE: 20180705
